FAERS Safety Report 13612584 (Version 1)
Quarter: 2017Q2

REPORT INFORMATION
  Report Type: Report from Study
  Country: GB (occurrence: GB)
  Receive Date: 20170605
  Receipt Date: 20170605
  Transmission Date: 20170830
  Serious: Yes (Hospitalization)
  Sender: FDA-Public Use
  Company Number: GB-CELLTRION INC.-2017GB004754

PATIENT

DRUGS (56)
  1. INFLECTRA [Suspect]
     Active Substance: INFLIXIMAB-DYYB
     Indication: PRODUCT USED FOR UNKNOWN INDICATION
     Dosage: 5 MG/KG, 8 WEEKLY
     Route: 065
     Dates: start: 20160804, end: 20170105
  2. ONDANSETRON [Concomitant]
     Active Substance: ONDANSETRON
     Dosage: 4 MG, IN 2 ML INJECTION, STAT
     Dates: start: 20170329, end: 20170329
  3. CEFUROXIME. [Concomitant]
     Active Substance: CEFUROXIME
     Dosage: 1.5 G, SLOW IV, EVERY 8H
     Route: 042
     Dates: start: 20170330, end: 20170404
  4. MUPIROCINE [Concomitant]
     Dosage: 2 %, NASAL OINTMENT, BOTH NOSTRILS, 3X/DAY
     Dates: start: 20170401, end: 20170405
  5. CALCIUM GLUCONATE. [Concomitant]
     Active Substance: CALCIUM GLUCONATE
     Dosage: 2.25 MMOL, (10 % INJECTION), STAT
     Dates: start: 20170402, end: 20170402
  6. BRAMOX [Concomitant]
     Dosage: 10 MG (2X 5 MG TABLETS), 3X/DAY
     Dates: start: 20170404
  7. TEICOPLANIN [Concomitant]
     Active Substance: TEICOPLANIN
     Dosage: 400 MG INJECTION, SLOW IV 24 H
     Route: 042
     Dates: start: 20170404
  8. CALCIUM CHLORIDE. [Concomitant]
     Active Substance: CALCIUM CHLORIDE
     Dosage: 1000 MG (1 G IN 10 ML PFS), STAT
     Dates: start: 20170401, end: 20170401
  9. PROCHLORPERAZINE. [Concomitant]
     Active Substance: PROCHLORPERAZINE
     Dosage: 12.5 MG IN 1 ML INJECTION, EVERY 8H AS NEEDED
     Dates: start: 20170330
  10. FENTANYL. [Concomitant]
     Active Substance: FENTANYL
     Dosage: 50 UG, UNK
     Dates: start: 20170330
  11. FORTISIP COMPACT [Concomitant]
     Active Substance: CARBOHYDRATES\FATTY ACIDS\MINERALS\PROTEIN\VITAMINS
  12. TEICOPLANIN [Concomitant]
     Active Substance: TEICOPLANIN
     Dosage: 400 MG INJECTION, SLOW IV, 2X/DAY
     Route: 042
     Dates: start: 20170404, end: 20170405
  13. MULTIVITAMINS                      /00116001/ [Concomitant]
     Active Substance: VITAMINS
  14. PROPOFOL. [Concomitant]
     Active Substance: PROPOFOL
     Dosage: 200 MG, UNK
  15. MIDAZOLAM [Concomitant]
     Active Substance: MIDAZOLAM HYDROCHLORIDE
     Dosage: UNK
     Dates: start: 20170331, end: 20170331
  16. ONDANSETRON [Concomitant]
     Active Substance: ONDANSETRON
     Dosage: 4 MG, EVERY 8 HOURS
     Route: 041
     Dates: start: 20170330
  17. PARACETAMOL [Concomitant]
     Active Substance: ACETAMINOPHEN
     Dosage: 1000 MG, EVERY 4-6 H
     Dates: start: 20170330, end: 20170330
  18. BRAMOX [Concomitant]
     Dosage: 10 MG (2X 5 MG TABLETS), 3X/DAY
     Dates: start: 20170404, end: 20170404
  19. PLASMA-LYTE [Concomitant]
     Active Substance: ELECTROLYTES NOS
     Dosage: 1000 ML, AT AN INITIAL INFUSION RATE OF 2.78 ML/MIN OVER 6 H, STAT
     Dates: start: 20170330, end: 20170331
  20. ROCURONIUM [Concomitant]
     Active Substance: ROCURONIUM BROMIDE
     Dosage: 50 MG, UNK
  21. BUPIVACAINE. [Concomitant]
     Active Substance: BUPIVACAINE
     Dosage: 10 UNK, UNK
  22. ENOXAPARIN [Concomitant]
     Active Substance: ENOXAPARIN
     Dosage: 40 MG, 1X/DAY AT 6PM
     Dates: start: 20170330, end: 20170511
  23. METRONIDAZOLE. [Concomitant]
     Active Substance: METRONIDAZOLE
     Dosage: 500 MG, TID 500 MG, 3X/DAY (AT AN INITIAL RATE OF 3.33 ML/MIN OVER 30 MINS)
     Dates: start: 201703
  24. GENTAMYCIN [Concomitant]
     Active Substance: GENTAMICIN
     Dosage: 350 MG, IN 0.9 % NACL 100 ML, AT AN INITIAL INFUSION RATE OF 1.81 ML/MIN ICER 60 MINS, 24 H
     Dates: start: 20170402, end: 20170404
  25. GENTAMYCIN [Concomitant]
     Active Substance: GENTAMICIN
     Dosage: UNK
  26. MEROPENEM. [Concomitant]
     Active Substance: MEROPENEM
     Dosage: 1 G INJECTION, SLOW IV, EVERY 8H
     Route: 042
     Dates: start: 20170404, end: 20170406
  27. PLASMA-LYTE [Concomitant]
     Active Substance: ELECTROLYTES NOS
     Dosage: 1000 ML, AT AN INITIAL INFUSION RATE OF 1.67 ML/MIN, OVER 10 H STAT
     Dates: start: 20170330, end: 20170331
  28. CYCLIZINE [Concomitant]
     Active Substance: CYCLIZINE
     Dosage: 50 MG IN 1 ML INJECTION, EVERY 8H AS NEEDED
     Dates: start: 20170330, end: 20170404
  29. HYPROMELLOSE [Concomitant]
     Active Substance: HYPROMELLOSES
     Dosage: 1 DROP (0.3 % SOLUTION), 4X/DAY AS NEEDED
     Dates: start: 20170401
  30. MAGNESIUM [Concomitant]
     Active Substance: MAGNESIUM
     Dosage: 1 BAG OF MAGNESIUM 5 MG (20 MMOL) IN 50 ML OF 0.9% NACL, INITIAL INFUSION RATE OF 10 ML/H,AS NEEDED
     Dates: start: 20170403
  31. TRAMADOL. [Concomitant]
     Active Substance: TRAMADOL
     Dosage: 50 MG, AS NEEDED
  32. OMEPRAZOLE. [Concomitant]
     Active Substance: OMEPRAZOLE
     Dosage: 10 MG, UNK
     Dates: start: 20130101, end: 20170330
  33. CALCIUM GLUCONATE. [Concomitant]
     Active Substance: CALCIUM GLUCONATE
     Dosage: 2.25 MMOL, (10 % INJECTION), STAT
     Dates: start: 20170401, end: 20170401
  34. BUPIVACAIN + FENTANYL COMP [Concomitant]
     Active Substance: BUPIVACAINE HYDROCHLORIDE\FENTANYL CITRATE
     Dosage: 2-10 ML/H BOLUS 2 ML(FENTANYL 2 UG/ML AND LEVOBUBIVACAIONE 0.1 % EPIDURAL INFUSION) 250 ML,AS NEEDED
     Dates: start: 20170331, end: 20170401
  35. REMSIMA [Suspect]
     Active Substance: INFLIXIMAB
     Indication: PRODUCT USED FOR UNKNOWN INDICATION
     Dosage: 5 MG/KG, 8 WEEKLY
     Route: 065
     Dates: start: 20170302
  36. AZATHIOPRINE. [Concomitant]
     Active Substance: AZATHIOPRINE
     Dosage: 50 MG, UNK
     Dates: start: 20020101, end: 20170330
  37. METRONIDAZOLE. [Concomitant]
     Active Substance: METRONIDAZOLE
     Dosage: 400 MG, BID
     Dates: start: 20170406
  38. TEICOPLANIN [Concomitant]
     Active Substance: TEICOPLANIN
     Dosage: 400 MG INJECTION, SLOW IV, 1X/DAY AT 8 AM
     Route: 042
     Dates: start: 20170405
  39. PHOSPHATES                         /00766901/ [Concomitant]
     Dosage: 50 MMOL/500ML, AT AN INITIAL RATE OF 0.35 ML/MIN OVER 24 H, SINGLE
     Dates: start: 20170403, end: 20170403
  40. LEVOBUPIVACAINE [Concomitant]
     Active Substance: LEVOBUPIVACAINE
     Dosage: 200 ML OF 0.125 INFUSION, 4 ML TO 20 ML PER HOUR, AS NEEDED
     Dates: start: 20170401
  41. CEFUROXIME. [Concomitant]
     Active Substance: CEFUROXIME
     Dosage: 1.5 G, IN METRONIDAZOLE 500 MG IV INFUSION, AT AN INITIAL RATE OF 5.8 ML/MIN OVER 20 MINS
     Route: 042
     Dates: start: 20170330, end: 20170404
  42. OCTENISAN                          /07129001/ [Concomitant]
     Dosage: 1 DF, MONTHLY, WHOLE BODY WASH
     Dates: start: 20170401, end: 20170405
  43. OCTENISAN                          /07129001/ [Concomitant]
     Dosage: 1 DF, SHAMPOO, AS NEEDED
     Dates: start: 20170401, end: 20170405
  44. MEROPENEM. [Concomitant]
     Active Substance: MEROPENEM
     Dosage: 2 G INJECTION, SLOW IV, EVERY 8H
     Route: 042
     Dates: start: 20170404, end: 20170406
  45. PLASMA-LYTE [Concomitant]
     Active Substance: ELECTROLYTES NOS
     Dosage: 1000 ML, AT AN INITIAL INFUSION RATE OF 2.08 ML OVER 8 H, STAT
     Dates: start: 20170330, end: 20170331
  46. CYCLIZINE [Concomitant]
     Active Substance: CYCLIZINE
     Dosage: 50 MG, EVERY 8H AS NEEDED
     Dates: start: 20170330, end: 20170404
  47. POTASSIUM CHLORIDE. [Concomitant]
     Active Substance: POTASSIUM CHLORIDE
     Dosage: 40 MMOL, AS NEEDED
     Dates: start: 20170401
  48. RANITIDINE. [Concomitant]
     Active Substance: RANITIDINE
     Dosage: 50 MG, IN 2 ML INJECTION,3X/DAY
     Dates: start: 20170401
  49. OXYGEN. [Concomitant]
     Active Substance: OXYGEN
     Dosage: 1 OXYGEN SUPPLY, 4X/DAY
     Dates: start: 20170401
  50. CALCIUM GLUCONATE. [Concomitant]
     Active Substance: CALCIUM GLUCONATE
     Dosage: 2.25 MMOL, (10 % INJECTION), 3X/DAY
     Dates: start: 20170402, end: 20170403
  51. CALCIUM GLUCONATE. [Concomitant]
     Active Substance: CALCIUM GLUCONATE
     Dosage: UNK
  52. SODIUM CHLORIDE. [Concomitant]
     Active Substance: SODIUM CHLORIDE
     Dosage: 1000 ML, AT 0.9 %,STAT
     Dates: start: 20170330, end: 20170330
  53. PLASMA-LYTE [Concomitant]
     Active Substance: ELECTROLYTES NOS
     Dosage: 1000 ML, AT AN INITIAL INFUSION RATE OF 2.08 ML/MIN, OVER 8 H STAT
     Dates: start: 20170330, end: 20170331
  54. MORPHINE [Concomitant]
     Active Substance: MORPHINE
     Dosage: 5 MG (10 MG IN 5 ML ORAL SOLUTION), HOURLY AS NEEDED
     Dates: start: 20170330
  55. CITALOPRAM [Concomitant]
     Active Substance: CITALOPRAM HYDROBROMIDE
     Dosage: 20 MG, STAT
     Dates: start: 20170406
  56. AMILORIDE [Concomitant]
     Active Substance: AMILORIDE
     Dosage: 5 MG, STAT
     Dates: start: 20170406, end: 20170406

REACTIONS (1)
  - Post procedural sepsis [Recovered/Resolved]

NARRATIVE: CASE EVENT DATE: 20170405
